FAERS Safety Report 21930113 (Version 2)
Quarter: 2023Q2

REPORT INFORMATION
  Report Type: Spontaneous
  Country: JP (occurrence: JP)
  Receive Date: 20230131
  Receipt Date: 20230407
  Transmission Date: 20230722
  Serious: Yes (Other)
  Sender: FDA-Public Use
  Company Number: JP-002147023-NVSJ2023JP002131

PATIENT

DRUGS (5)
  1. LIDOCAINE [Suspect]
     Active Substance: LIDOCAINE
     Indication: Foetal exposure during pregnancy
     Dosage: 10 ML
     Route: 064
  2. LIDOCAINE [Suspect]
     Active Substance: LIDOCAINE
     Dosage: 4 ML
     Route: 064
  3. THIAMYLAL SODIUM [Suspect]
     Active Substance: THIAMYLAL SODIUM
     Indication: Foetal exposure during pregnancy
     Dosage: 300 MG
     Route: 064
  4. ROCURONIUM BROMIDE [Suspect]
     Active Substance: ROCURONIUM BROMIDE
     Indication: Foetal exposure during pregnancy
     Dosage: 50 MG
     Route: 064
  5. SEVOFLURANE [Suspect]
     Active Substance: SEVOFLURANE
     Indication: Foetal exposure during pregnancy
     Dosage: UNK
     Route: 064

REACTIONS (2)
  - Premature baby [Unknown]
  - Foetal exposure during delivery [Unknown]
